FAERS Safety Report 5804307-2 (Version None)
Quarter: 2008Q3

REPORT INFORMATION
  Report Type: 
  Country: None (occurrence: None)
  Receive Date: 20080709
  Receipt Date: 20080702
  Transmission Date: 20090109
  Serious: Yes (Other)
  Sender: FDA-Public Use
  Company Number: US-ASTRAZENECA-2008UW13207

PATIENT
  Age: 22 Month
  Sex: Female

DRUGS (4)
  1. PULMICORT-100 [Suspect]
     Route: 055
     Dates: start: 20080101
  2. XOPENEX [Suspect]
     Dosage: 0.63 MG/3 ML
     Route: 055
  3. ALBUTEROL [Suspect]
  4. QVAR 40 [Suspect]
     Route: 055
     Dates: start: 20080101

REACTIONS (6)
  - ANXIETY [None]
  - CRYING [None]
  - GENERALISED ERYTHEMA [None]
  - HALLUCINATION [None]
  - OXYGEN SATURATION DECREASED [None]
  - PRURITUS [None]
